FAERS Safety Report 8658950 (Version 3)
Quarter: 2020Q3

REPORT INFORMATION
  Report Type: Report from Study
  Country: DE (occurrence: DE)
  Receive Date: 20120710
  Receipt Date: 20131125
  Transmission Date: 20201105
  Serious: Yes (Other)
  Sender: FDA-Public Use
  Company Number: DE-ROCHE-1075690

PATIENT
  Age: 60 Year
  Sex: Female
  Weight: 88 kg

DRUGS (26)
  1. TOCILIZUMAB. [Suspect]
     Active Substance: TOCILIZUMAB
     Indication: RHEUMATOID ARTHRITIS
     Route: 042
     Dates: start: 20111201
  2. TOCILIZUMAB. [Suspect]
     Active Substance: TOCILIZUMAB
     Route: 042
     Dates: start: 20110308
  3. TOCILIZUMAB. [Suspect]
     Active Substance: TOCILIZUMAB
     Route: 042
     Dates: start: 20111005
  4. TOCILIZUMAB. [Suspect]
     Active Substance: TOCILIZUMAB
     Route: 042
     Dates: start: 20111102
  5. AMLODIPIN [Suspect]
     Active Substance: AMLODIPINE BESYLATE
     Indication: PRODUCT USED FOR UNKNOWN INDICATION
     Route: 048
  6. LODOTRA [Concomitant]
     Active Substance: PREDNISONE
     Route: 048
  7. SIMVASTATIN. [Concomitant]
     Active Substance: SIMVASTATIN
     Route: 048
  8. AMLODIPIN [Concomitant]
     Active Substance: AMLODIPINE BESYLATE
     Route: 065
  9. SILYMARIN [Concomitant]
     Active Substance: DIETARY SUPPLEMENT\HERBALS\MILK THISTLE
     Route: 065
  10. BONVIVA [Concomitant]
     Active Substance: IBANDRONATE SODIUM
     Route: 065
     Dates: end: 20120525
  11. ARTELAC [HYPROMELLOSE] [Concomitant]
     Active Substance: HYPROMELLOSES
     Dosage: AS REQUIRED
     Route: 065
  12. TOCILIZUMAB. [Suspect]
     Active Substance: TOCILIZUMAB
     Route: 042
  13. TOCILIZUMAB. [Suspect]
     Active Substance: TOCILIZUMAB
     Dosage: DOSE DECREASED
     Route: 042
     Dates: start: 20110909
  14. TILIDIN [Suspect]
     Active Substance: NALOXONE HYDROCHLORIDE\TILIDINE HYDROCHLORIDE
     Indication: RHEUMATOID ARTHRITIS
     Route: 048
  15. PREDNISOLON [Concomitant]
     Active Substance: PREDNISOLONE
     Route: 065
  16. TOCILIZUMAB. [Suspect]
     Active Substance: TOCILIZUMAB
     Route: 042
     Dates: start: 20111202
  17. SIMVASTATIN. [Concomitant]
     Active Substance: SIMVASTATIN
     Route: 048
  18. AMLODIPIN [Concomitant]
     Active Substance: AMLODIPINE BESYLATE
     Route: 048
  19. ASPIRIN. [Concomitant]
     Active Substance: ASPIRIN
     Route: 048
  20. COLECALCIFEROL [Concomitant]
     Active Substance: CHOLECALCIFEROL
     Route: 065
  21. BONVIVA [Concomitant]
     Active Substance: IBANDRONATE SODIUM
     Route: 042
     Dates: end: 20120208
  22. TOCILIZUMAB. [Suspect]
     Active Substance: TOCILIZUMAB
     Route: 042
     Dates: start: 20110308
  23. IBANDRONIC ACID. [Suspect]
     Active Substance: IBANDRONIC ACID
     Indication: PRODUCT USED FOR UNKNOWN INDICATION
     Route: 042
  24. VOTUM (OLMESARTAN MEDOXOMIL) [Suspect]
     Active Substance: OLMESARTAN MEDOXOMIL
     Indication: PRODUCT USED FOR UNKNOWN INDICATION
     Route: 048
  25. LEFLUNOMIDE. [Suspect]
     Active Substance: LEFLUNOMIDE
     Indication: RHEUMATOID ARTHRITIS
     Route: 048
  26. VALSARTAN. [Concomitant]
     Active Substance: VALSARTAN
     Route: 048

REACTIONS (3)
  - Chest discomfort [Recovered/Resolved]
  - Nausea [Recovered/Resolved]
  - Dyspnoea [Recovered/Resolved]

NARRATIVE: CASE EVENT DATE: 20120103
